FAERS Safety Report 19582400 (Version 1)
Quarter: 2021Q3

REPORT INFORMATION
  Report Type: Spontaneous
  Country: US (occurrence: US)
  Receive Date: 20210720
  Receipt Date: 20210720
  Transmission Date: 20211014
  Serious: No
  Sender: FDA-Public Use
  Company Number: US-TEVA-2021-US-1933320

PATIENT
  Age: 71 Year
  Sex: Male

DRUGS (1)
  1. PHENTERMINE TEVA [Suspect]
     Active Substance: PHENTERMINE
     Route: 065

REACTIONS (1)
  - Diarrhoea [Unknown]
